FAERS Safety Report 4968251-5 (Version None)
Quarter: 2006Q2

REPORT INFORMATION
  Report Type: 
  Country: None (occurrence: None)
  Receive Date: 20060405
  Receipt Date: 20060327
  Transmission Date: 20061013
  Serious: Yes (Other)
  Sender: FDA-Public Use
  Company Number: GXKR2006FR01379

PATIENT
  Sex: Female

DRUGS (1)
  1. SPIRAMYCINE/METRONIDAZOLE G GAM (NGX) FILM-COATED TABLET [Suspect]

REACTIONS (2)
  - ANGIONEUROTIC OEDEMA [None]
  - URTICARIA [None]
